FAERS Safety Report 4519380-1 (Version None)
Quarter: 2004Q4

REPORT INFORMATION
  Report Type: 
  Country: None (occurrence: None)
  Receive Date: 20041206
  Receipt Date: 20041119
  Transmission Date: 20050328
  Serious: Yes (Hospitalization, Disabling)
  Sender: FDA-Public Use
  Company Number: 2004-BP-12187RO

PATIENT
  Age: 81 Year
  Sex: Male
  Weight: 75 kg

DRUGS (4)
  1. MORPHINE SULFATE [Suspect]
     Indication: ANAESTHESIA
     Dosage: 1 MG PER EPIDURAL CATHETER  SEE IMAGE
  2. BUPIVACAINE [Suspect]
     Indication: ANAESTHESIA
     Dosage: 0.2%, 8ML, SEE IAMGE
  3. LIDOCAINE AND EPINEPHRINE [Suspect]
     Indication: ANAESTHESIA
     Dosage: 2 % WITH 1:200,000 EPI PER EPIDURAL CATHETER SEE IMAGE
  4. FENTANYL [Suspect]
     Indication: ANAESTHESIA
     Dosage: PER EPIDURAL CATHETER SEE IMAGE

REACTIONS (12)
  - AREFLEXIA [None]
  - ASTHENIA [None]
  - BLOOD PRESSURE DECREASED [None]
  - COMPUTERISED TOMOGRAM ABNORMAL [None]
  - FAECAL INCONTINENCE [None]
  - HYPOAESTHESIA [None]
  - MUSCULAR WEAKNESS [None]
  - NUCLEAR MAGNETIC RESONANCE IMAGING ABNORMAL [None]
  - PARALYSIS FLACCID [None]
  - PARAPLEGIA [None]
  - SENSORY LOSS [None]
  - URINARY INCONTINENCE [None]
